FAERS Safety Report 4363426-0 (Version None)
Quarter: 2004Q2

REPORT INFORMATION
  Report Type: 
  Country: None (occurrence: None)
  Receive Date: 20040524
  Receipt Date: 20040427
  Transmission Date: 20050107
  Serious: Yes (Other)
  Sender: FDA-Public Use
  Company Number: NL-GLAXOSMITHKLINE-B0331384A

PATIENT
  Age: 50 Year
  Sex: Male

DRUGS (2)
  1. SEROXAT [Suspect]
     Indication: POST-TRAUMATIC STRESS DISORDER
     Route: 048
     Dates: start: 20040309
  2. COZAAR [Concomitant]
     Dosage: 50MG PER DAY
     Route: 048

REACTIONS (2)
  - OBSESSIVE-COMPULSIVE DISORDER [None]
  - SUICIDAL IDEATION [None]
